FAERS Safety Report 8920167 (Version 1)
Quarter: 2012Q4

REPORT INFORMATION
  Report Type: 
  Country: US (occurrence: US)
  Receive Date: 20121122
  Receipt Date: 20121122
  Transmission Date: 20130627
  Serious: Yes (Other)
  Sender: FDA-Public Use
  Company Number: US-ROCHE-1090105

PATIENT
  Sex: Male
  Weight: 81.72 kg

DRUGS (3)
  1. ACCUTANE [Suspect]
     Indication: ACNE
     Route: 065
     Dates: start: 200106, end: 200108
  2. ACCUTANE [Suspect]
     Route: 065
     Dates: start: 200111, end: 200204
  3. ACCUTANE [Suspect]
     Route: 065
     Dates: start: 1985, end: 1987

REACTIONS (2)
  - Crohn^s disease [Unknown]
  - Anal fissure [Unknown]
